FAERS Safety Report 6371975-9 (Version None)
Quarter: 2009Q3

REPORT INFORMATION
  Report Type: 
  Country: None (occurrence: None)
  Receive Date: 20090923
  Receipt Date: 20090915
  Transmission Date: 20100115
  Serious: Yes (Hospitalization)
  Sender: FDA-Public Use
  Company Number: US-AMGEN-QUU364755

PATIENT
  Sex: Female

DRUGS (1)
  1. ENBREL [Suspect]
     Indication: PSORIASIS
     Route: 058
     Dates: start: 20050101, end: 20070101

REACTIONS (5)
  - EAR INFECTION [None]
  - EAR INFECTION FUNGAL [None]
  - LOCALISED INFECTION [None]
  - PRECANCEROUS CELLS PRESENT [None]
  - PSORIASIS [None]
